FAERS Safety Report 20662089 (Version 1)
Quarter: 2022Q2

REPORT INFORMATION
  Report Type: Spontaneous
  Country: JP (occurrence: JP)
  Receive Date: 20220401
  Receipt Date: 20220401
  Transmission Date: 20220721
  Serious: Yes (Hospitalization)
  Sender: FDA-Public Use
  Company Number: JP-CELLTRION INC.-2022JP003665

PATIENT

DRUGS (4)
  1. INFLIXIMAB [Suspect]
     Active Substance: INFLIXIMAB
     Indication: Phlebitis deep
  2. MESALAMINE [Suspect]
     Active Substance: MESALAMINE
     Indication: Phlebitis deep
  3. COLCHICINE [Suspect]
     Active Substance: COLCHICINE
     Indication: Phlebitis deep
  4. BUDESONIDE [Suspect]
     Active Substance: BUDESONIDE
     Indication: Phlebitis deep

REACTIONS (4)
  - Phlebitis deep [Unknown]
  - Vasculitis gastrointestinal [Unknown]
  - Drug ineffective for unapproved indication [Unknown]
  - Off label use [Unknown]
